FAERS Safety Report 17003351 (Version 2)
Quarter: 2019Q4

REPORT INFORMATION
  Report Type: Spontaneous
  Country: JP (occurrence: JP)
  Receive Date: 20191107
  Receipt Date: 20191115
  Transmission Date: 20200122
  Serious: Yes (Hospitalization, Disabling, Other)
  Sender: FDA-Public Use
  Company Number: JP-TEVA-2019-JP-1133983

PATIENT
  Age: 8 Decade
  Sex: Male

DRUGS (3)
  1. AZILECT [Suspect]
     Active Substance: RASAGILINE MESYLATE
     Indication: PARKINSON^S DISEASE
     Dosage: 1 MILLIGRAM DAILY;
     Route: 048
     Dates: start: 20190910, end: 20191010
  2. NOURIAST [Concomitant]
     Active Substance: ISTRADEFYLLINE
     Route: 065
  3. NEUPRO [Concomitant]
     Active Substance: ROTIGOTINE
     Route: 065

REACTIONS (2)
  - Hallucination, visual [Not Recovered/Not Resolved]
  - Cerebellar infarction [Not Recovered/Not Resolved]

NARRATIVE: CASE EVENT DATE: 20191010
